FAERS Safety Report 5997730-7 (Version None)
Quarter: 2008Q4

REPORT INFORMATION
  Report Type: 
  Country: None (occurrence: None)
  Receive Date: 20081212
  Receipt Date: 20081117
  Transmission Date: 20090506
  Serious: No
  Sender: FDA-Public Use
  Company Number: US-ABBOTT-08P-163-0488757-00

PATIENT
  Sex: Male

DRUGS (10)
  1. HUMIRA [Suspect]
     Indication: COLITIS ULCERATIVE
     Dosage: 40MG EOW
     Route: 058
     Dates: start: 20070101, end: 20071201
  2. HUMIRA [Suspect]
     Indication: ARTHRITIS
  3. HUMIRA [Suspect]
     Indication: ARTHRALGIA
  4. INFLIXIMAB [Concomitant]
     Indication: COLITIS ULCERATIVE
     Dates: start: 20070101, end: 20070101
  5. INFLIXIMAB [Concomitant]
     Indication: ARTHRITIS
     Dosage: RESTARTED AFTER HUMIRA
     Dates: start: 20080101
  6. INFLIXIMAB [Concomitant]
     Indication: ARTHRALGIA
  7. OXAPROZIN [Concomitant]
     Indication: DRUG USE FOR UNKNOWN INDICATION
  8. FENOFIBRATE [Concomitant]
     Indication: DRUG USE FOR UNKNOWN INDICATION
  9. NICOTINIC ACID [Concomitant]
     Indication: DRUG USE FOR UNKNOWN INDICATION
  10. TESTOSTERONE [Concomitant]
     Indication: DRUG USE FOR UNKNOWN INDICATION

REACTIONS (1)
  - DRUG INEFFECTIVE [None]
